FAERS Safety Report 5463270-7 (Version None)
Quarter: 2007Q3

REPORT INFORMATION
  Report Type: 
  Country: None (occurrence: None)
  Receive Date: 20070920
  Receipt Date: 20070910
  Transmission Date: 20080115
  Serious: Yes (Hospitalization)
  Sender: FDA-Public Use
  Company Number: NL-BRISTOL-MYERS SQUIBB COMPANY-13911631

PATIENT
  Age: 50 Year
  Sex: Female

DRUGS (3)
  1. CISPLATIN [Suspect]
     Indication: NON-SMALL CELL LUNG CANCER
     Route: 042
     Dates: start: 20050923, end: 20051014
  2. VINORELBINE [Suspect]
     Indication: NON-SMALL CELL LUNG CANCER
     Route: 042
     Dates: start: 20050923, end: 20051014
  3. OXYNORM [Concomitant]
     Indication: PAIN
     Dates: start: 20050906, end: 20051007

REACTIONS (2)
  - CONSTIPATION [None]
  - MUSCULAR WEAKNESS [None]
